FAERS Safety Report 8602210-6 (Version None)
Quarter: 2012Q3

REPORT INFORMATION
  Report Type: 
  Country: None (occurrence: None)
  Receive Date: 20120817
  Receipt Date: 20120807
  Transmission Date: 20120928
  Serious: Yes (Hospitalization, Other)
  Sender: FDA-Public Use
  Company Number: CA-PFIZER INC-2011182385

PATIENT
  Age: 75 Year
  Sex: Female
  Weight: 54.966 kg

DRUGS (10)
  1. FOLIC ACID [Concomitant]
     Dosage: UNK
  2. OXYCODONE HCL AND ACETAMINOPHEN [Concomitant]
     Dosage: UNK
  3. METHOTREXATE [Concomitant]
     Indication: RHEUMATOID ARTHRITIS
     Dosage: 10 MG, QWK
     Route: 048
     Dates: start: 20100819
  4. PERINDOPRIL ERBUMINE [Concomitant]
     Dosage: UNK
  5. FOLIC ACID [Concomitant]
     Dosage: UNK
  6. METHYLPREDNISOLONE ACETATE [Suspect]
     Indication: RHEUMATOID ARTHRITIS
     Dosage: 80 MG, UNK
  7. DEPO-MEDROL [Concomitant]
     Dosage: UNK
  8. ENBREL [Suspect]
     Indication: RHEUMATOID ARTHRITIS
     Dosage: 50 MG, QWK
     Route: 058
     Dates: start: 20100309, end: 20101126
  9. CELEBREX [Concomitant]
     Dosage: UNK
  10. LEVOTHYROXINE SODIUM [Concomitant]
     Dosage: UNK

REACTIONS (7)
  - CONDITION AGGRAVATED [None]
  - INJECTION SITE SWELLING [None]
  - RHEUMATOID ARTHRITIS [None]
  - INJECTION SITE ERYTHEMA [None]
  - MUSCLE ABSCESS [None]
  - INJECTION SITE INFECTION [None]
  - OEDEMA PERIPHERAL [None]
